FAERS Safety Report 23160331 (Version 1)
Quarter: 2023Q4

REPORT INFORMATION
  Report Type: Spontaneous
  Country: US (occurrence: None)
  Receive Date: 20231108
  Receipt Date: 20231108
  Transmission Date: 20240109
  Serious: Yes (Hospitalization)
  Sender: FDA-Public Use
  Company Number: None

PATIENT
  Sex: Female
  Weight: 66.4 kg

DRUGS (1)
  1. DASATINIB [Suspect]
     Active Substance: DASATINIB
     Dates: end: 20231101

REACTIONS (3)
  - Headache [None]
  - Dizziness [None]
  - Central nervous system function test abnormal [None]

NARRATIVE: CASE EVENT DATE: 20231102
